FAERS Safety Report 10560680 (Version 1)
Quarter: 2014Q4

REPORT INFORMATION
  Report Type: Spontaneous
  Country: US (occurrence: US)
  Receive Date: 20141103
  Receipt Date: 20141103
  Transmission Date: 20150529
  Serious: No
  Sender: FDA-Public Use
  Company Number: US-PFIZER INC-2014302748

PATIENT
  Age: 90 Year
  Sex: Male
  Weight: 66 kg

DRUGS (5)
  1. CELEBREX [Suspect]
     Active Substance: CELECOXIB
     Indication: NECK PAIN
     Dosage: 200 MG, 2X/DAY(ONCE BEFORE BREAKFAST AND ONCE BEFORE DINNER TIME)
  2. LISINOPRIL. [Concomitant]
     Active Substance: LISINOPRIL
     Dosage: 10MG TABLET DAILY IN THE MORNING.
  3. ASPIRIN. [Concomitant]
     Active Substance: ASPIRIN
     Dosage: 81MG DAILY IN THE MORNING
  4. XANAX [Concomitant]
     Active Substance: ALPRAZOLAM
     Indication: ANXIETY
     Dosage: 0.05 MG, 3X/DAY
  5. CELEBREX [Suspect]
     Active Substance: CELECOXIB
     Indication: MUSCULOSKELETAL PAIN

REACTIONS (7)
  - Condition aggravated [Unknown]
  - Headache [Unknown]
  - Dyspnoea [Unknown]
  - Pain in extremity [Unknown]
  - Feeling cold [Unknown]
  - Decreased appetite [Unknown]
  - Pain [Unknown]
